FAERS Safety Report 23982960 (Version 6)
Quarter: 2024Q3

REPORT INFORMATION
  Report Type: Spontaneous
  Country: US (occurrence: US)
  Receive Date: 20240617
  Receipt Date: 20240910
  Transmission Date: 20241017
  Serious: No
  Sender: PURDUE
  Company Number: US-PURDUE PHARMA-USA-2024-0310204

PATIENT
  Sex: Female

DRUGS (5)
  1. OXYCODONE HYDROCHLORIDE [Suspect]
     Active Substance: OXYCODONE HYDROCHLORIDE
     Indication: Analgesic therapy
     Dosage: 10 MILLIGRAM
     Route: 065
  2. ACETAMINOPHEN\OXYCODONE HYDROCHLORIDE [Suspect]
     Active Substance: ACETAMINOPHEN\OXYCODONE HYDROCHLORIDE
     Indication: Analgesic therapy
     Dosage: 10-325 MILLIGRAM
     Route: 048
  3. ACETAMINOPHEN\OXYCODONE HYDROCHLORIDE [Suspect]
     Active Substance: ACETAMINOPHEN\OXYCODONE HYDROCHLORIDE
     Dosage: UNKNOWN
     Route: 048
  4. ACETAMINOPHEN\OXYCODONE HYDROCHLORIDE [Suspect]
     Active Substance: ACETAMINOPHEN\OXYCODONE HYDROCHLORIDE
     Dosage: 7.5-325 MILLIGRAM
     Route: 048
  5. PERCOCET [Suspect]
     Active Substance: ACETAMINOPHEN\OXYCODONE HYDROCHLORIDE
     Indication: Analgesic therapy
     Dosage: 10 MILLIGRAM
     Route: 065

REACTIONS (15)
  - Hunger [Unknown]
  - Illness [Unknown]
  - Migraine [Unknown]
  - Sedation [Unknown]
  - Weight increased [Unknown]
  - Asthenia [Unknown]
  - Somnolence [Unknown]
  - Nausea [Unknown]
  - Suspected counterfeit product [Unknown]
  - Product formulation issue [Unknown]
  - Adverse drug reaction [Unknown]
  - Dizziness [Unknown]
  - Inadequate analgesia [Unknown]
  - Drug withdrawal syndrome [Unknown]
  - Product substitution issue [Unknown]
